FAERS Safety Report 6134206-0 (Version None)
Quarter: 2009Q1

REPORT INFORMATION
  Report Type: 
  Country: None (occurrence: None)
  Receive Date: 20090325
  Receipt Date: 20090308
  Transmission Date: 20090719
  Serious: Yes (Other)
  Sender: FDA-Public Use
  Company Number: 2005S1001264

PATIENT
  Age: 61 Year
  Sex: Female
  Weight: 65.318 kg

DRUGS (10)
  1. PHOSPHOSODA FLAVOR NOT SPECIFIED [Suspect]
     Indication: COLONOSCOPY
     Dosage: 90 ML; TOTAL; PO
     Route: 048
     Dates: start: 20041013, end: 20041013
  2. LANTUS [Concomitant]
  3. HUMALOG [Concomitant]
  4. PULMICORT-100 [Concomitant]
  5. ALBUTEROL [Concomitant]
  6. CARDIZEM CD [Concomitant]
  7. M.V.I. [Concomitant]
  8. ALTACE [Concomitant]
  9. LIPITOR [Concomitant]
  10. ASPIRIN [Concomitant]

REACTIONS (6)
  - DRUG TOXICITY [None]
  - HAEMODIALYSIS [None]
  - LOW DENSITY LIPOPROTEIN INCREASED [None]
  - NEPHROPATHY [None]
  - RENAL FAILURE ACUTE [None]
  - RENAL FAILURE CHRONIC [None]
